FAERS Safety Report 5753193-8 (Version None)
Quarter: 2008Q2

REPORT INFORMATION
  Report Type: 
  Country: None (occurrence: None)
  Receive Date: 20080530
  Receipt Date: 20080522
  Transmission Date: 20081010
  Serious: Yes (Hospitalization)
  Sender: FDA-Public Use
  Company Number: IT-BAYER-200818974GPV

PATIENT
  Age: 74 Year
  Sex: Female
  Weight: 49 kg

DRUGS (12)
  1. SORAFENIB [Suspect]
     Indication: NON-SMALL CELL LUNG CANCER
     Dosage: TOTAL DAILY DOSE: 800 MG
     Route: 048
     Dates: start: 20080508
  2. GEMCITABINE [Suspect]
     Indication: NON-SMALL CELL LUNG CANCER
     Route: 042
     Dates: start: 20080508, end: 20080508
  3. GEMCITABINE [Suspect]
     Route: 042
     Dates: start: 20080515, end: 20080515
  4. LANSOPRAZOLE [Concomitant]
     Indication: PROPHYLAXIS
     Route: 065
  5. ZANEDIP [Concomitant]
     Indication: HYPERTENSION
     Route: 065
  6. LEVOPRAID [Concomitant]
     Indication: NAUSEA
     Route: 065
  7. ASPIRIN [Concomitant]
     Indication: HYPERTENSION
     Route: 065
  8. CARDIAZOL-PARACODINA [Concomitant]
     Indication: COUGH
     Route: 065
  9. TALOFEN [Concomitant]
     Indication: DEPRESSION
     Route: 065
  10. TRIASPORIN [Concomitant]
     Indication: FUNGAL INFECTION
     Route: 065
  11. EFFERALGAN [PARACETAMOL] [Concomitant]
     Indication: PAIN
     Route: 065
  12. SYNACTHEN DEPOT [Concomitant]
     Indication: ASTHENIA
     Route: 065

REACTIONS (1)
  - HYPOKALAEMIA [None]
